FAERS Safety Report 21418891 (Version 1)
Quarter: 2022Q4

REPORT INFORMATION
  Report Type: Spontaneous
  Country: US (occurrence: None)
  Receive Date: 20221005
  Receipt Date: 20221005
  Transmission Date: 20230112
  Serious: Yes (Other)
  Sender: FDA-Public Use
  Company Number: None

PATIENT
  Sex: Female
  Weight: 96.4 kg

DRUGS (3)
  1. LEVOTHYROXINE [Suspect]
     Active Substance: LEVOTHYROXINE
     Indication: Basedow^s disease
     Dosage: FREQUENCY : DAILY;?
     Route: 048
     Dates: start: 202102, end: 202201
  2. LEVOTHYROXINE [Suspect]
     Active Substance: LEVOTHYROXINE
  3. LEVOTHYROXINE [Suspect]
     Active Substance: LEVOTHYROXINE

REACTIONS (1)
  - Therapy non-responder [None]
